FAERS Safety Report 6645058-4 (Version None)
Quarter: 2010Q1

REPORT INFORMATION
  Report Type: 
  Country: None (occurrence: None)
  Receive Date: 20100319
  Receipt Date: 20100319
  Transmission Date: 20100710
  Serious: Yes (Life-Threatening, Hospitalization)
  Sender: FDA-Public Use
  Company Number: None

PATIENT
  Sex: Female
  Weight: 115 kg

DRUGS (9)
  1. ORENCIA [Suspect]
     Indication: POLYARTHRITIS
     Dosage: ONCE IV; ONE DOSE
     Route: 042
     Dates: start: 20091202, end: 20091202
  2. HYDROXYCHLOROQUINE SULFATE [Concomitant]
  3. OMEPRAZOLE [Concomitant]
  4. ASACOL [Concomitant]
  5. METFORMIN HCL [Concomitant]
  6. SYNTHROID [Concomitant]
  7. ALPRAZOLAM [Concomitant]
  8. IMIPRAMINE [Concomitant]
  9. CITALOPRAM HYDROBROMIDE [Concomitant]

REACTIONS (1)
  - ANGIOEDEMA [None]
